FAERS Safety Report 6798277-0 (Version None)
Quarter: 2010Q2

REPORT INFORMATION
  Report Type: 
  Country: None (occurrence: None)
  Receive Date: 20100623
  Receipt Date: 20100607
  Transmission Date: 20101027
  Serious: No
  Sender: FDA-Public Use
  Company Number: 20108184

PATIENT
  Age: 46 Year
  Sex: Male

DRUGS (1)
  1. LIORESAL [Suspect]
     Indication: MUSCLE SPASTICITY
     Dosage: 799,3 MCG, DAILY, INTRATHECAL
     Route: 037

REACTIONS (6)
  - BLOOD CREATINE PHOSPHOKINASE INCREASED [None]
  - MENTAL DISORDER [None]
  - MUSCLE SPASTICITY [None]
  - PRURITUS [None]
  - TACHYCARDIA [None]
  - WITHDRAWAL SYNDROME [None]
